FAERS Safety Report 11769698 (Version 2)
Quarter: 2015Q4

REPORT INFORMATION
  Report Type: Spontaneous
  Country: US (occurrence: US)
  Receive Date: 20151123
  Receipt Date: 20151124
  Transmission Date: 20160304
  Serious: Yes (Other)
  Sender: FDA-Public Use
  Company Number: US-SA-2015SA183694

PATIENT
  Age: 62 Year
  Sex: Female

DRUGS (1)
  1. LANTUS [Suspect]
     Active Substance: INSULIN GLARGINE
     Indication: TYPE 2 DIABETES MELLITUS
     Dosage: 10-15 UNITS DAILY
     Route: 065
     Dates: start: 2008, end: 201508

REACTIONS (2)
  - Speech disorder [Unknown]
  - Vocal cord neoplasm [Unknown]

NARRATIVE: CASE EVENT DATE: 1999
